FAERS Safety Report 7725034-0 (Version None)
Quarter: 2011Q3

REPORT INFORMATION
  Report Type: 
  Country: None (occurrence: None)
  Receive Date: 20110901
  Receipt Date: 20110830
  Transmission Date: 20111222
  Serious: Yes (Death, Hospitalization)
  Sender: FDA-Public Use
  Company Number: US-AMGEN-USASP2011038115

PATIENT
  Age: 79 Year
  Sex: Female
  Weight: 45.351 kg

DRUGS (2)
  1. NPLATE [Suspect]
     Indication: IDIOPATHIC THROMBOCYTOPENIC PURPURA
     Dosage: 50 MUG, ONE TIME DOSE
     Route: 058
     Dates: start: 20110114, end: 20110119
  2. PREDNISONE [Concomitant]
     Indication: ANTIINFLAMMATORY THERAPY
     Dosage: 20 MG, BID
     Dates: start: 20101129

REACTIONS (6)
  - CARDIO-RESPIRATORY ARREST [None]
  - DEATH [None]
  - CLOSTRIDIUM DIFFICILE COLITIS [None]
  - CARDIAC FAILURE CONGESTIVE [None]
  - RENAL FAILURE CHRONIC [None]
  - THROMBOCYTOPENIA [None]
